FAERS Safety Report 25210356 (Version 1)
Quarter: 2025Q2

REPORT INFORMATION
  Report Type: Spontaneous
  Country: NL (occurrence: NL)
  Receive Date: 20250417
  Receipt Date: 20250417
  Transmission Date: 20250717
  Serious: Yes (Hospitalization, Other)
  Sender: MYLAN
  Company Number: NL-BoehringerIngelheim-2025-BI-019098

PATIENT
  Age: 73 Year
  Sex: Male

DRUGS (14)
  1. DABIGATRAN [Suspect]
     Active Substance: DABIGATRAN
     Indication: Atrial fibrillation
     Dosage: 110 MILLIGRAM, BID
     Dates: start: 20230706, end: 202409
  2. DABIGATRAN [Suspect]
     Active Substance: DABIGATRAN
     Dosage: 110 MILLIGRAM, BID
     Dates: start: 20241026
  3. ACORAMIDIS [Concomitant]
     Active Substance: ACORAMIDIS
     Indication: Cardiac amyloidosis
     Dates: start: 20230117, end: 20241011
  4. COZAAR [Concomitant]
     Active Substance: LOSARTAN POTASSIUM
     Indication: Cardiac failure
     Dosage: 25 MILLIGRAM, QD
     Dates: start: 20231213
  5. COZAAR [Concomitant]
     Active Substance: LOSARTAN POTASSIUM
     Dosage: 50 MILLIGRAM, QD
  6. PANTOZOL [Concomitant]
     Active Substance: PANTOPRAZOLE SODIUM
     Indication: Gastrointestinal haemorrhage
     Dosage: 40 MILLIGRAM, BID
     Dates: start: 20200718
  7. FUROSEMIDE [Concomitant]
     Active Substance: FUROSEMIDE
     Indication: Cardiac failure
     Dosage: 40 MILLIGRAM, BID
     Dates: start: 202101
  8. FERROUS FUMARATE [Concomitant]
     Active Substance: FERROUS FUMARATE
     Indication: Anaemia prophylaxis
     Dosage: 200 MILLIGRAM, QD
     Dates: start: 2021
  9. NOSCAPINE [Concomitant]
     Active Substance: NOSCAPINE
     Indication: Cough
     Dosage: 5 MILLILITER, Q8H
     Dates: start: 20230106
  10. INFLUENZA VIRUS VACCINE [Concomitant]
     Active Substance: INFLUENZA VIRUS VACCINE
     Indication: Influenza
     Dates: start: 20231028, end: 20231028
  11. Comirnaty [Concomitant]
     Indication: COVID-19
  12. Comirnaty [Concomitant]
  13. Comirnaty [Concomitant]
  14. SPIRONOLACTONE [Concomitant]
     Active Substance: SPIRONOLACTONE
     Indication: Product used for unknown indication

REACTIONS (9)
  - Endocarditis staphylococcal [Recovered/Resolved]
  - Haemorrhoids [Recovered/Resolved]
  - Cardiac failure [Recovered/Resolved]
  - Anaemia [Recovered/Resolved]
  - Gastric haemorrhage [Recovered/Resolved]
  - Rectal haemorrhage [Recovered/Resolved]
  - Pleural effusion [Not Recovered/Not Resolved]
  - Fatigue [Unknown]
  - Dieulafoy^s vascular malformation [Unknown]

NARRATIVE: CASE EVENT DATE: 20231010
